FAERS Safety Report 4267265-0 (Version None)
Quarter: 2004Q1

REPORT INFORMATION
  Report Type: 
  Country: None (occurrence: None)
  Receive Date: 20040107
  Receipt Date: 20031216
  Transmission Date: 20041129
  Serious: Yes (Other)
  Sender: FDA-Public Use
  Company Number: CIO03020812

PATIENT
  Age: 13 Year
  Sex: Male
  Weight: 54.4 kg

DRUGS (1)
  1. NYQUIL COLD/FLU RELIEF ALCOHOL 10% ORIGINAL FLAVOR (ETHANOL 10%, PARAC [Suspect]
     Dosage: 20 ML, 1 ONLY FOR 1 DAY, ORAL
     Route: 048
     Dates: start: 20031122, end: 20031122

REACTIONS (3)
  - CONVULSION [None]
  - DEHYDRATION [None]
  - SYNCOPE [None]
